FAERS Safety Report 19273122 (Version 1)
Quarter: 2021Q2

REPORT INFORMATION
  Report Type: Spontaneous
  Country: US (occurrence: US)
  Receive Date: 20210519
  Receipt Date: 20210519
  Transmission Date: 20210717
  Serious: No
  Sender: FDA-Public Use
  Company Number: US-ASTRAZENECA-2021A345299

PATIENT
  Sex: Male

DRUGS (2)
  1. BYDUREON [Suspect]
     Active Substance: EXENATIDE
     Dosage: UNKNOWN
     Route: 065
  2. BYDUREON BCISE [Suspect]
     Active Substance: EXENATIDE
     Route: 065
     Dates: start: 20210419

REACTIONS (6)
  - Decreased appetite [Unknown]
  - Wrong technique in device usage process [Unknown]
  - Product leakage [Unknown]
  - Weight decreased [Unknown]
  - Device ineffective [Unknown]
  - Frustration tolerance decreased [Unknown]
